FAERS Safety Report 4575687-3 (Version None)
Quarter: 2005Q1

REPORT INFORMATION
  Report Type: 
  Country: None (occurrence: None)
  Receive Date: 20050127
  Receipt Date: 20040928
  Transmission Date: 20050727
  Serious: No
  Sender: FDA-Public Use
  Company Number: USA040979608

PATIENT
  Age: 37 Year
  Sex: Male
  Weight: 77 kg

DRUGS (5)
  1. STRATTERA [Suspect]
     Indication: ATTENTION DEFICIT/HYPERACTIVITY DISORDER
     Dosage: 40 MG DAY
     Dates: start: 20040924
  2. ALLEGRA [Concomitant]
  3. FLONASE [Concomitant]
  4. VITAMIN B-12 [Concomitant]
  5. HERBAL SUPPLEMENTS [Concomitant]

REACTIONS (3)
  - ERYTHEMA [None]
  - RASH [None]
  - RASH PAPULAR [None]
